FAERS Safety Report 5217429-4 (Version None)
Quarter: 2007Q1

REPORT INFORMATION
  Report Type: 
  Country: None (occurrence: None)
  Receive Date: 20070124
  Receipt Date: 20060306
  Transmission Date: 20070707
  Serious: Yes (Disabling)
  Sender: FDA-Public Use
  Company Number: US-GLAXOSMITHKLINE-A0594840A

PATIENT
  Age: 52 Year
  Sex: Male
  Weight: 102.3 kg

DRUGS (1)
  1. PAXIL CR [Suspect]
     Indication: DRUG USE FOR UNKNOWN INDICATION
     Dosage: 25MG UNKNOWN
     Route: 048
     Dates: start: 20060130, end: 20060131

REACTIONS (2)
  - DIZZINESS [None]
  - NAUSEA [None]
